FAERS Safety Report 9382853 (Version 3)
Quarter: 2013Q4

REPORT INFORMATION
  Report Type: Spontaneous
  Country: US (occurrence: US)
  Receive Date: 20130703
  Receipt Date: 20131219
  Transmission Date: 20140711
  Serious: Yes (Hospitalization, Other)
  Sender: FDA-Public Use
  Company Number: US-B.I. PHARMACEUTICALS,INC./RIDGEFIELD-2013-BI-18725BP

PATIENT
  Age: 64 Year
  Sex: Male
  Weight: 108.86 kg

DRUGS (10)
  1. PRADAXA [Suspect]
     Indication: ATRIAL FIBRILLATION
     Dosage: 300 MG
     Route: 048
     Dates: start: 201008, end: 20110718
  2. CENTRUM [Concomitant]
  3. FISH OIL [Concomitant]
  4. HYDROCHLOROTHIAZIDE [Concomitant]
     Route: 048
  5. NAPROXEN [Concomitant]
     Dosage: 1000 MG
     Route: 048
  6. LOTREL [Concomitant]
     Route: 048
  7. BYSTOLIC [Concomitant]
     Dosage: 5 MG
     Route: 048
  8. BACTROBAN [Concomitant]
     Route: 061
  9. FLOMAX [Concomitant]
  10. METFORMIN [Concomitant]

REACTIONS (7)
  - Cerebral haemorrhage [Unknown]
  - Intracranial haematoma [Unknown]
  - Gastrointestinal haemorrhage [Unknown]
  - Haemorrhagic stroke [Unknown]
  - Respiratory failure [Unknown]
  - Pulmonary embolism [Unknown]
  - Cholecystitis [Unknown]
